FAERS Safety Report 17220679 (Version 1)
Quarter: 2019Q4

REPORT INFORMATION
  Report Type: Spontaneous
  Country: ES (occurrence: ES)
  Receive Date: 20191231
  Receipt Date: 20191231
  Transmission Date: 20200122
  Serious: Yes (Hospitalization, Other)
  Sender: FDA-Public Use
  Company Number: ES-MYLANLABS-2019M1114776

PATIENT
  Age: 75 Year
  Sex: Male

DRUGS (2)
  1. FENTANYL. [Suspect]
     Active Substance: FENTANYL
     Indication: ANALGESIC THERAPY
     Dosage: UNK
     Dates: start: 201909
  2. FENTANYL. [Suspect]
     Active Substance: FENTANYL
     Indication: SCIATICA
     Dosage: 1 DOSAGE FORM, Q3D
     Route: 062
     Dates: start: 20190903, end: 20190904

REACTIONS (4)
  - Vomiting [Recovered/Resolved]
  - Dizziness [Unknown]
  - Product administration error [Recovered/Resolved]
  - Bradyphrenia [Unknown]

NARRATIVE: CASE EVENT DATE: 201909
